FAERS Safety Report 5141004-3 (Version None)
Quarter: 2006Q4

REPORT INFORMATION
  Report Type: 
  Country: None (occurrence: None)
  Receive Date: 20061026
  Receipt Date: 20061013
  Transmission Date: 20070319
  Serious: Yes (Death, Hospitalization, Other)
  Sender: FDA-Public Use
  Company Number: 2006124012

PATIENT
  Age: 33 Year
  Sex: Female

DRUGS (2)
  1. ZELDOX (CAPSULES) (ZIPRASIDONE) [Suspect]
     Indication: PSYCHOTIC DISORDER
     Dosage: 160  MG (80 MG, 2 IN 1 D), ORAL
     Route: 048
     Dates: start: 20060101
  2. TRILEPTAL [Concomitant]

REACTIONS (2)
  - PSYCHOTIC DISORDER [None]
  - SUDDEN UNEXPLAINED DEATH IN EPILEPSY [None]
